FAERS Safety Report 13666922 (Version 1)
Quarter: 2017Q2

REPORT INFORMATION
  Report Type: Spontaneous
  Country: US (occurrence: US)
  Receive Date: 20170619
  Receipt Date: 20170619
  Transmission Date: 20170830
  Serious: No
  Sender: FDA-Public Use
  Company Number: US-ROCHE-1013759

PATIENT
  Sex: Female
  Weight: 51.4 kg

DRUGS (8)
  1. OSCAL [Concomitant]
     Active Substance: CALCIUM CARBONATE
     Route: 065
  2. OPTIVITE [Concomitant]
     Route: 065
  3. VITAMIN SUPPLEMENT [Concomitant]
     Active Substance: VITAMINS
     Route: 065
  4. SYNTHROID [Concomitant]
     Active Substance: LEVOTHYROXINE SODIUM
     Route: 065
  5. HYDROCHLOROTHIAZIDE. [Concomitant]
     Active Substance: HYDROCHLOROTHIAZIDE
     Route: 065
  6. XELODA [Suspect]
     Active Substance: CAPECITABINE
     Indication: COLON CANCER
     Route: 048
     Dates: start: 20111002
  7. PERCOCET [Concomitant]
     Active Substance: ACETAMINOPHEN\OXYCODONE HYDROCHLORIDE
  8. METHYLDOPA. [Concomitant]
     Active Substance: METHYLDOPA
     Route: 065

REACTIONS (2)
  - Erythema [Unknown]
  - Fatigue [Unknown]

NARRATIVE: CASE EVENT DATE: 20111015
